FAERS Safety Report 5655248-5 (Version None)
Quarter: 2008Q1

REPORT INFORMATION
  Report Type: 
  Country: None (occurrence: None)
  Receive Date: 20080307
  Receipt Date: 20080228
  Transmission Date: 20080703
  Serious: Yes (Other)
  Sender: FDA-Public Use
  Company Number: A0714117A

PATIENT
  Age: 74 Year
  Sex: Male

DRUGS (6)
  1. AVANDIA [Suspect]
     Indication: DRUG USE FOR UNKNOWN INDICATION
     Route: 048
  2. BYETTA [Concomitant]
  3. QUINAPRIL HCL [Concomitant]
  4. METOPROLOL TARTRATE [Concomitant]
  5. PLAVIX [Concomitant]
  6. GLUCOPHAGE METFORMINE [Concomitant]

REACTIONS (2)
  - ARTERIAL OCCLUSIVE DISEASE [None]
  - MYOCARDIAL INFARCTION [None]
